FAERS Safety Report 20806881 (Version 1)
Quarter: 2022Q2

REPORT INFORMATION
  Report Type: Spontaneous
  Country: US (occurrence: US)
  Receive Date: 20220510
  Receipt Date: 20220510
  Transmission Date: 20220721
  Serious: Yes (Hospitalization)
  Sender: FDA-Public Use
  Company Number: US-JNJFOC-20220503598

PATIENT
  Age: 30 Year
  Sex: Female

DRUGS (2)
  1. STELARA [Suspect]
     Active Substance: USTEKINUMAB
     Indication: Product used for unknown indication
     Route: 058
     Dates: start: 20220402, end: 20220419
  2. STELARA [Suspect]
     Active Substance: USTEKINUMAB

REACTIONS (3)
  - Nephrolithiasis [Unknown]
  - Haematochezia [Unknown]
  - Infection [Unknown]

NARRATIVE: CASE EVENT DATE: 20220401
